FAERS Safety Report 5087989-5 (Version None)
Quarter: 2006Q3

REPORT INFORMATION
  Report Type: 
  Country: None (occurrence: None)
  Receive Date: 20060823
  Receipt Date: 20060823
  Transmission Date: 20061208
  Serious: Yes (Hospitalization)
  Sender: FDA-Public Use
  Company Number: None

PATIENT
  Age: 76 Year
  Sex: Female
  Weight: 67.9 kg

DRUGS (12)
  1. LANOXIN [Suspect]
     Indication: ATRIAL FIBRILLATION
     Dosage: 0.25 MG PO DAILY   CHRONIC, EXACT DATES UNKNOWN
     Route: 048
  2. ALDACTONE [Concomitant]
  3. LASIX [Concomitant]
  4. LIPITOR [Concomitant]
  5. ASPIRIN [Concomitant]
  6. AMBIEN [Concomitant]
  7. CELEXA [Concomitant]
  8. LEVOXYL [Concomitant]
  9. POTASSIUM [Concomitant]
  10. LOPRESSOR [Concomitant]
  11. PREDNISONE TAB [Concomitant]
  12. LORAZEPAM [Concomitant]

REACTIONS (8)
  - ASTHENIA [None]
  - BRADYCARDIA [None]
  - FATIGUE [None]
  - HYPERKALAEMIA [None]
  - HYPERTENSION [None]
  - HYPOTENSION [None]
  - RENAL FAILURE ACUTE [None]
  - THERAPEUTIC AGENT TOXICITY [None]
